FAERS Safety Report 14593664 (Version 1)
Quarter: 2018Q1

REPORT INFORMATION
  Report Type: Spontaneous
  Country: AT (occurrence: AT)
  Receive Date: 20180302
  Receipt Date: 20180302
  Transmission Date: 20180509
  Serious: Yes (Hospitalization, Other)
  Sender: FDA-Public Use
  Company Number: AT-PFIZER INC-2018066076

PATIENT
  Age: 49 Year
  Sex: Female
  Weight: 74.7 kg

DRUGS (37)
  1. SERTRALINE HCL [Suspect]
     Active Substance: SERTRALINE HYDROCHLORIDE
     Dosage: 200 MG, UNK
     Dates: start: 20160218
  2. LYRICA [Concomitant]
     Active Substance: PREGABALIN
     Dosage: 400 MG, UNK
     Dates: start: 20160218
  3. TRAMAL RETARD [Concomitant]
     Active Substance: TRAMADOL
     Dosage: 100 MG, UNK
     Dates: end: 20160118
  4. MEXALEN [Concomitant]
     Active Substance: ACETAMINOPHEN
     Dosage: 500 MG, UNK
     Dates: start: 20160202, end: 20160202
  5. LISINOPRIL. [Concomitant]
     Active Substance: LISINOPRIL
     Dosage: 20 MG, UNK
     Dates: end: 20160212
  6. SERTRALINE HCL [Suspect]
     Active Substance: SERTRALINE HYDROCHLORIDE
     Dosage: 100 MG, UNK
     Dates: start: 20160125, end: 20160129
  7. BRUFEN [Suspect]
     Active Substance: IBUPROFEN
     Dosage: 600 MG, UNK
     Dates: start: 20160215, end: 20160216
  8. HOVA [Concomitant]
     Active Substance: HERBALS\HOPS\VALERIAN
     Dosage: 2 DF, AS NEEDED
     Dates: start: 20160214
  9. MEXALEN [Concomitant]
     Active Substance: ACETAMINOPHEN
     Dosage: 1500 MG, UNK
     Dates: start: 20160213, end: 20160214
  10. LISINOPRIL. [Concomitant]
     Active Substance: LISINOPRIL
     Dosage: 10 MG, UNK
     Dates: start: 20160213
  11. BRUFEN [Suspect]
     Active Substance: IBUPROFEN
     Dosage: 1000 MG, UNK
     Dates: start: 20160120, end: 20160120
  12. BRUFEN [Suspect]
     Active Substance: IBUPROFEN
     Dosage: 400 MG, UNK
     Dates: start: 20160217
  13. MIRTAZAPIN [Suspect]
     Active Substance: MIRTAZAPINE
     Dosage: 60 MG, UNK
     Dates: start: 20160125, end: 20160202
  14. ABILIFY [Suspect]
     Active Substance: ARIPIPRAZOLE
     Dosage: 10 MG, UNK
     Route: 048
     Dates: start: 20160127
  15. MEXALEN [Concomitant]
     Active Substance: ACETAMINOPHEN
     Dosage: 1000 MG, UNK
     Dates: start: 20160208, end: 20160212
  16. MEXALEN [Concomitant]
     Active Substance: ACETAMINOPHEN
     Dosage: 1000 MG, UNK
     Dates: start: 20160215
  17. PANTOPRAZOL [Concomitant]
     Active Substance: PANTOPRAZOLE SODIUM
     Dosage: 20 MG, UNK
     Dates: start: 20160120
  18. SERTRALINE HCL [Suspect]
     Active Substance: SERTRALINE HYDROCHLORIDE
     Dosage: 150 MG, UNK
     Dates: start: 20160130, end: 20160217
  19. BRUFEN [Suspect]
     Active Substance: IBUPROFEN
     Dosage: 800 MG, UNK
     Dates: start: 20160121, end: 20160214
  20. HOVA [Concomitant]
     Active Substance: HERBALS\HOPS\VALERIAN
     Dosage: 2 DF, UNK
     Dates: start: 20160209, end: 20160212
  21. LYRICA [Concomitant]
     Active Substance: PREGABALIN
     Dosage: 100 MG, UNK
     Dates: end: 20160121
  22. LYRICA [Concomitant]
     Active Substance: PREGABALIN
     Dosage: 200 MG, UNK
     Dates: start: 20160125, end: 20160126
  23. TRAMAL RETARD [Concomitant]
     Active Substance: TRAMADOL
     Dosage: 50 MG, UNK
     Dates: start: 20160119, end: 20160124
  24. SERTRALINE HCL [Suspect]
     Active Substance: SERTRALINE HYDROCHLORIDE
     Dosage: 50 MG, UNK
     Dates: start: 20160122, end: 20160124
  25. LYRICA [Concomitant]
     Active Substance: PREGABALIN
     Dosage: 350 MG, UNK
     Dates: start: 20160217, end: 20160217
  26. MEXALEN [Concomitant]
     Active Substance: ACETAMINOPHEN
     Dosage: 500 MG, UNK
     Dates: start: 20160129, end: 20160129
  27. OLEOVIT D3 [Concomitant]
     Active Substance: CHOLECALCIFEROL
     Dosage: 28 GTT, WEEKLY
  28. BRUFEN [Suspect]
     Active Substance: IBUPROFEN
     Indication: HEADACHE
     Dosage: 1200 MG, UNK
     Dates: end: 20160119
  29. ABILIFY [Suspect]
     Active Substance: ARIPIPRAZOLE
     Dosage: 5 MG, UNK
     Route: 048
     Dates: start: 20160122, end: 20160126
  30. LYRICA [Concomitant]
     Active Substance: PREGABALIN
     Dosage: 250 MG, UNK
     Dates: start: 20160127, end: 20160129
  31. MAGNOSOLV [Concomitant]
     Dosage: 1 DF, UNK
     Dates: start: 20160127
  32. MIRTAZAPIN [Suspect]
     Active Substance: MIRTAZAPINE
     Indication: SLEEP DISORDER
     Dosage: 30 MG, UNK
     Dates: start: 201501
  33. MIRTAZAPIN [Suspect]
     Active Substance: MIRTAZAPINE
     Dosage: 45 MG, UNK
     Dates: end: 20160124
  34. MIRTAZAPIN [Suspect]
     Active Substance: MIRTAZAPINE
     Dosage: 30 MG, UNK
     Dates: start: 20160203, end: 20160207
  35. HOVA [Concomitant]
     Active Substance: HERBALS\HOPS\VALERIAN
     Dosage: 2 DF, AS NEEDED
     Dates: start: 20160129, end: 20160129
  36. LYRICA [Concomitant]
     Active Substance: PREGABALIN
     Dosage: 150 MG, UNK
     Dates: start: 20160122, end: 20160124
  37. LYRICA [Concomitant]
     Active Substance: PREGABALIN
     Dosage: 300 MG, UNK
     Dates: start: 20160130, end: 20160216

REACTIONS (2)
  - Depressive symptom [Unknown]
  - Hypertension [Recovered/Resolved]

NARRATIVE: CASE EVENT DATE: 20160202
